FAERS Safety Report 16250274 (Version 1)
Quarter: 2019Q2

REPORT INFORMATION
  Report Type: Spontaneous
  Country: US (occurrence: US)
  Receive Date: 20190429
  Receipt Date: 20190429
  Transmission Date: 20190711
  Serious: No
  Sender: FDA-Public Use
  Company Number: US-PFIZER INC-2019169289

PATIENT
  Age: 34 Year
  Sex: Male
  Weight: 54 kg

DRUGS (2)
  1. TESTOSTERONE CIPIONATE [Suspect]
     Active Substance: TESTOSTERONE
     Indication: BLOOD TESTOSTERONE DECREASED
     Dosage: 100 MG, WEEKLY (100MG/0.5ML)
     Route: 030
     Dates: start: 20190408
  2. TESTOSTERONE CIPIONATE [Suspect]
     Active Substance: TESTOSTERONE
     Dosage: UNK
     Dates: start: 20190415

REACTIONS (7)
  - Blood testosterone decreased [Unknown]
  - Vitamin D decreased [Unknown]
  - Weight gain poor [Not Recovered/Not Resolved]
  - Energy increased [Unknown]
  - Injection site pain [Recovered/Resolved]
  - Iron binding capacity unsaturated increased [Unknown]
  - Intentional product misuse [Unknown]

NARRATIVE: CASE EVENT DATE: 20190408
